FAERS Safety Report 4278594-9 (Version None)
Quarter: 2004Q1

REPORT INFORMATION
  Report Type: 
  Country: None (occurrence: None)
  Receive Date: 20040122
  Receipt Date: 20040122
  Transmission Date: 20041129
  Serious: No
  Sender: FDA-Public Use
  Company Number: None

PATIENT
  Age: 29 Year
  Sex: Male

DRUGS (18)
  1. TOPAMAX [Suspect]
     Indication: NEUROPATHIC PAIN
     Dosage: 25 MG BID ORAL
     Route: 048
     Dates: start: 20031024, end: 20031111
  2. GABAPENTIN [Concomitant]
  3. OXYCODONE HCL [Concomitant]
  4. OXYCODONE AND ACETAMINOPHEN [Concomitant]
  5. METHOCARBOMOL [Concomitant]
  6. BACLOFEN [Concomitant]
  7. ESCITALPRAM [Concomitant]
  8. PAROXETINE [Concomitant]
  9. ENALAPRIL MALEATE [Concomitant]
  10. NISOLDIPINE [Concomitant]
  11. ASCORBIC ACID [Concomitant]
  12. BISACODYL [Concomitant]
  13. LACTULOSE [Concomitant]
  14. SENNA [Concomitant]
  15. OXYBUTYNIN [Concomitant]
  16. VITAMIN E [Concomitant]
  17. SILDENAFIL [Concomitant]
  18. SILVER SULFADIAZINE [Concomitant]

REACTIONS (1)
  - PETECHIAE [None]
